FAERS Safety Report 6504169-4 (Version None)
Quarter: 2009Q4

REPORT INFORMATION
  Report Type: 
  Country: None (occurrence: None)
  Receive Date: 20091215
  Receipt Date: 20091204
  Transmission Date: 20100525
  Serious: Yes (Death, Hospitalization, Other)
  Sender: FDA-Public Use
  Company Number: 2009AP004843

PATIENT
  Age: 72 Year
  Sex: Male

DRUGS (9)
  1. SERTRALINE HYDROCHLORIDE [Suspect]
     Indication: DEPRESSION
     Dosage: 50 MG
  2. AMANTADINE HCL [Suspect]
     Indication: PARKINSON'S DISEASE
     Dosage: 200 MG; BID, 100 MG; QD
  3. BACLOFEN [Suspect]
     Indication: HICCUPS
     Dosage: 10 MG; BID
  4. BENSERAZIDE HYDROCHLORIDE [Suspect]
     Indication: PARKINSON'S DISEASE
     Dosage: 1 DF; BID
  5. LEVODOPA [Suspect]
     Indication: PARKINSON'S DISEASE
     Dosage: 1 DF; BID
  6. METOCLOPRAMIDE [Concomitant]
  7. CHLORPROMAZINE [Concomitant]
  8. HALOPERIDOL [Concomitant]
  9. LANSOPRAZOLE [Concomitant]

REACTIONS (11)
  - CEREBROVASCULAR ACCIDENT [None]
  - CIRCULATORY COLLAPSE [None]
  - CONDITION AGGRAVATED [None]
  - DEPRESSION [None]
  - FALL [None]
  - HICCUPS [None]
  - HYPONATRAEMIA [None]
  - ORTHOSTATIC HYPOTENSION [None]
  - PARKINSON'S DISEASE [None]
  - SLEEP DISORDER [None]
  - SOCIAL AVOIDANT BEHAVIOUR [None]
